FAERS Safety Report 13509925 (Version 1)
Quarter: 2017Q2

REPORT INFORMATION
  Report Type: Spontaneous
  Country: US (occurrence: US)
  Receive Date: 20170503
  Receipt Date: 20170503
  Transmission Date: 20170830
  Serious: No
  Sender: FDA-Public Use
  Company Number: US-SA-2017SA054050

PATIENT
  Age: 54 Year
  Sex: Male

DRUGS (14)
  1. PROGRAF [Concomitant]
     Active Substance: TACROLIMUS\TACROLIMUS ANHYDROUS
  2. CALCIUM [Concomitant]
     Active Substance: CALCIUM
  3. PRALUENT [Suspect]
     Active Substance: ALIROCUMAB
     Indication: HYPERCHOLESTEROLAEMIA
     Dosage: DOSE:150 MILLIGRAM(S)/MILLILITRE
     Route: 058
  4. FLUOXETINE HYDROCHLORIDE. [Concomitant]
     Active Substance: FLUOXETINE HYDROCHLORIDE
  5. ALIROCUMAB PREFILLED PEN [Concomitant]
     Active Substance: ALIROCUMAB
     Indication: HYPERCHOLESTEROLAEMIA
  6. MYFORTIC [Concomitant]
     Active Substance: MYCOPHENOLATE SODIUM
  7. TYLENOL [Concomitant]
     Active Substance: ACETAMINOPHEN
     Dosage: EXTRA STRENGTH
  8. CLONIDINE HYDROCHLORIDE. [Concomitant]
     Active Substance: CLONIDINE HYDROCHLORIDE
  9. PREDNISONE. [Concomitant]
     Active Substance: PREDNISONE
  10. LOSARTAN POTASSIUM. [Concomitant]
     Active Substance: LOSARTAN POTASSIUM
  11. PLAVIX [Concomitant]
     Active Substance: CLOPIDOGREL BISULFATE
  12. VITAMIN D [Concomitant]
     Active Substance: CHOLECALCIFEROL
  13. ASPIRIN. [Concomitant]
     Active Substance: ASPIRIN
     Dosage: 81 LOW DOSE
  14. HYDRALAZINE HYDROCHLORIDE. [Concomitant]
     Active Substance: HYDRALAZINE HYDROCHLORIDE

REACTIONS (2)
  - Myalgia [Unknown]
  - Pain in extremity [Unknown]

NARRATIVE: CASE EVENT DATE: 201702
